FAERS Safety Report 18187235 (Version 1)
Quarter: 2020Q3

REPORT INFORMATION
  Report Type: Report from Study
  Country: CA (occurrence: CA)
  Receive Date: 20200824
  Receipt Date: 20200824
  Transmission Date: 20201103
  Serious: Yes (Other)
  Sender: FDA-Public Use
  Company Number: CA-HLS-202001085

PATIENT
  Sex: Male

DRUGS (1)
  1. CLOZARIL [Suspect]
     Active Substance: CLOZAPINE
     Indication: PRODUCT USED FOR UNKNOWN INDICATION
     Dosage: UNKNOWN
     Route: 048
     Dates: start: 19960429

REACTIONS (5)
  - Delirium [Unknown]
  - Hyponatraemia [Not Recovered/Not Resolved]
  - Diabetes mellitus [Unknown]
  - Fall [Unknown]
  - Subdural haemorrhage [Unknown]
